FAERS Safety Report 9775932 (Version 1)
Quarter: 2013Q4

REPORT INFORMATION
  Report Type: Spontaneous
  Country: FR (occurrence: FR)
  Receive Date: 20131220
  Receipt Date: 20131220
  Transmission Date: 20140711
  Serious: Yes (Hospitalization, Other)
  Sender: FDA-Public Use
  Company Number: US-ASTRAZENECA-2013SE92441

PATIENT
  Age: 61 Year
  Sex: Female

DRUGS (7)
  1. KENZEN [Suspect]
     Indication: HYPERTENSION
     Dosage: EVERY DAY
     Route: 048
     Dates: end: 20130819
  2. METFORMIN [Suspect]
     Indication: TYPE 2 DIABETES MELLITUS
     Route: 048
     Dates: end: 20130818
  3. LANTUS [Concomitant]
     Indication: TYPE 2 DIABETES MELLITUS
     Dates: end: 20130819
  4. NOVORAPID [Concomitant]
     Indication: TYPE 2 DIABETES MELLITUS
     Dates: end: 20130819
  5. ZOLPIDEM [Concomitant]
  6. DOLIPRANE [Concomitant]
  7. INEXIUM [Concomitant]

REACTIONS (2)
  - Acidosis [Recovered/Resolved]
  - Renal failure acute [Recovered/Resolved]
